FAERS Safety Report 8113994-8 (Version None)
Quarter: 2012Q1

REPORT INFORMATION
  Report Type: 
  Country: None (occurrence: None)
  Receive Date: 20120203
  Receipt Date: 20120130
  Transmission Date: 20120608
  Serious: Yes (Other)
  Sender: FDA-Public Use
  Company Number: JP-MERCK-1201USA04012

PATIENT
  Age: 43 Year
  Sex: Male
  Weight: 79 kg

DRUGS (1)
  1. PROPECIA [Suspect]
     Indication: ANDROGENETIC ALOPECIA
     Route: 048
     Dates: start: 20100701

REACTIONS (1)
  - HEPATIC MASS [None]
